FAERS Safety Report 8961201 (Version 4)
Quarter: 2013Q2

REPORT INFORMATION
  Report Type: Spontaneous
  Country: HU (occurrence: HU)
  Receive Date: 20121213
  Receipt Date: 20130522
  Transmission Date: 20140414
  Serious: Yes (Hospitalization, Congenital Anomaly, Other)
  Sender: FDA-Public Use
  Company Number: HU-ABBOTT-12P-076-1020136-00

PATIENT
  Sex: 0

DRUGS (4)
  1. KLACID I.V. [Suspect]
     Indication: MATERNAL EXPOSURE TIMING UNSPECIFIED
     Route: 064
  2. KLACID I.V. [Suspect]
     Route: 063
  3. MEDROL [Suspect]
     Indication: MATERNAL EXPOSURE TIMING UNSPECIFIED
     Route: 064
  4. MEDROL [Suspect]
     Route: 063

REACTIONS (12)
  - Congenital hand malformation [Unknown]
  - Tachycardia [Unknown]
  - Umbilical cord around neck [Unknown]
  - Rash erythematous [Unknown]
  - Erythema toxicum neonatorum [Unknown]
  - Systemic lupus erythematosus [Unknown]
  - Body tinea [Unknown]
  - Hepatic function abnormal [Unknown]
  - Foetal exposure during pregnancy [Unknown]
  - Exposure during breast feeding [Unknown]
  - Candida infection [Unknown]
  - Caesarean section [None]
